FAERS Safety Report 5854900-6 (Version None)
Quarter: 2008Q3

REPORT INFORMATION
  Report Type: 
  Country: None (occurrence: None)
  Receive Date: 20080822
  Receipt Date: 20080521
  Transmission Date: 20090109
  Serious: No
  Sender: FDA-Public Use
  Company Number: US-ABBOTT-08P-163-0442638-00

PATIENT
  Sex: Female
  Weight: 81.72 kg

DRUGS (10)
  1. SYNTHROID [Suspect]
     Indication: AUTOIMMUNE THYROIDITIS
     Route: 048
     Dates: start: 19830101, end: 20050101
  2. SYNTHROID [Suspect]
     Dates: end: 20080306
  3. SYNTHROID [Suspect]
     Indication: AUTOIMMUNE THYROIDITIS
     Route: 048
     Dates: start: 20080310, end: 20080311
  4. LEVOTHYROXINE SODIUM [Suspect]
     Indication: AUTOIMMUNE THYROIDITIS
     Route: 048
     Dates: start: 20080307, end: 20080308
  5. OMEPRAZOLE [Concomitant]
     Indication: GASTRIC DISORDER
     Route: 048
  6. ACETYLCYSTEINE [Concomitant]
     Indication: INCREASED UPPER AIRWAY SECRETION
     Route: 048
  7. PANCREATIN TRIPLE STRENGTH CAP [Concomitant]
     Indication: DYSPEPSIA
     Route: 048
  8. PANCREATIN TRIPLE STRENGTH CAP [Concomitant]
     Indication: GASTRIC DISORDER
  9. TILACTASE [Concomitant]
     Indication: DYSPEPSIA
     Route: 048
  10. TILACTASE [Concomitant]
     Indication: GASTRIC DISORDER

REACTIONS (13)
  - ACNE [None]
  - CHEST PAIN [None]
  - GASTRIC DISORDER [None]
  - HEADACHE [None]
  - HYPOAESTHESIA [None]
  - INCREASED UPPER AIRWAY SECRETION [None]
  - LABORATORY TEST ABNORMAL [None]
  - LACTOSE INTOLERANCE [None]
  - LYMPHADENOPATHY [None]
  - NAUSEA [None]
  - NECK PAIN [None]
  - PAIN IN EXTREMITY [None]
  - UNEVALUABLE EVENT [None]
